FAERS Safety Report 9850799 (Version 1)
Quarter: 2013Q4

REPORT INFORMATION
  Report Type: Spontaneous
  Country: US (occurrence: None)
  Receive Date: 20131226
  Receipt Date: 20131226
  Transmission Date: 20140711
  Serious: Yes (Other)
  Sender: FDA-Public Use
  Company Number: PHEH2013US005540

PATIENT
  Age: 60 Year
  Sex: Male

DRUGS (6)
  1. EXFORGE HCT [Suspect]
     Dosage: 1 DF (VALSA320 MG/ AMLO 10 MG HCT 25 MG) QD, ORAL
     Route: 048
  2. BYSTOLIC [Suspect]
     Route: 048
  3. LISINOPRIL (LISINOPRIL) [Concomitant]
  4. PRAVASTATIN (PRAVASTATIN) [Concomitant]
  5. DOXAZOSIN (DOXAZOSIN) [Concomitant]
  6. HYDROCODONE (HYDROCODONE) [Concomitant]

REACTIONS (4)
  - Insomnia [None]
  - Oedema peripheral [None]
  - Arthralgia [None]
  - Pain in extremity [None]
